FAERS Safety Report 7452855-4 (Version None)
Quarter: 2011Q2

REPORT INFORMATION
  Report Type: 
  Country: None (occurrence: None)
  Receive Date: 20110502
  Receipt Date: 20101029
  Transmission Date: 20111010
  Serious: No
  Sender: FDA-Public Use
  Company Number: US-ASTRAZENECA-2010SE47903

PATIENT
  Sex: Female

DRUGS (1)
  1. NEXIUM [Suspect]
     Indication: GASTROOESOPHAGEAL REFLUX DISEASE
     Dosage: ONE CAPSULE IN AM AND ONE IN PM
     Route: 048
     Dates: start: 19950101

REACTIONS (3)
  - LARYNGITIS [None]
  - GASTROOESOPHAGEAL REFLUX DISEASE [None]
  - VOCAL CORD THICKENING [None]
